FAERS Safety Report 10300347 (Version 2)
Quarter: 2014Q3

REPORT INFORMATION
  Report Type: Spontaneous
  Country: US (occurrence: US)
  Receive Date: 20140712
  Receipt Date: 20140822
  Transmission Date: 20150326
  Serious: No
  Sender: FDA-Public Use
  Company Number: US-009507513-1407USA005379

PATIENT
  Age: 61 Year
  Sex: Female
  Weight: 72.56 kg

DRUGS (9)
  1. FOLIC ACID. [Concomitant]
     Active Substance: FOLIC ACID
     Dosage: ONE TABLET ONCE A DAY
     Route: 048
  2. AROMASIN [Suspect]
     Active Substance: EXEMESTANE
     Dosage: 25 MG, ONCE A DAY
     Route: 048
     Dates: start: 20140609
  3. SULFASALAZINE. [Suspect]
     Active Substance: SULFASALAZINE
     Indication: COLITIS MICROSCOPIC
     Dosage: 3 TABLETS, TWICE DAILY (BY TAKING THREE TABLETS IN THE MORNING AND THREE IN THE EVENING)
     Route: 048
  4. AROMASIN [Suspect]
     Active Substance: EXEMESTANE
     Indication: BREAST CANCER
     Dosage: 25 MG, QD
     Route: 048
     Dates: start: 2014, end: 20140605
  5. AMITRIPTYLINE HYDROCHLORIDE. [Suspect]
     Active Substance: AMITRIPTYLINE HYDROCHLORIDE
     Dosage: 3 TABLETS ONE A DAY IN THE EVENING
     Route: 048
     Dates: start: 201406
  6. SULFASALAZINE. [Suspect]
     Active Substance: SULFASALAZINE
     Dosage: 5 TABLETS IN A DAY, BY TAKING THREE TABLETS IN THE MORNING AND 2 TABLETS AT NIGHT
     Route: 048
     Dates: start: 201406
  7. AMITRIPTYLINE HYDROCHLORIDE. [Suspect]
     Active Substance: AMITRIPTYLINE HYDROCHLORIDE
     Indication: IRRITABLE BOWEL SYNDROME
     Dosage: THREE TABLETS TOGETHER ONCE A DAY IN THE EVENING
     Route: 048
  8. AMITRIPTYLINE HYDROCHLORIDE. [Suspect]
     Active Substance: AMITRIPTYLINE HYDROCHLORIDE
     Dosage: 2 TABLETS ONCE A DAY IN THE EVENING
     Route: 048
     Dates: start: 201406
  9. SULFASALAZINE. [Suspect]
     Active Substance: SULFASALAZINE
     Dosage: 6 TABLETS IN A DAY (BY TAKING 3 TABLETS IN THE MORNING AND THREE TABLETS AT NIGHT)
     Route: 048
     Dates: start: 201406

REACTIONS (3)
  - Pain [Recovered/Resolved]
  - Overdose [Unknown]
  - Arthralgia [Recovered/Resolved]

NARRATIVE: CASE EVENT DATE: 201406
